FAERS Safety Report 4321864-6 (Version None)
Quarter: 2004Q1

REPORT INFORMATION
  Report Type: 
  Country: None (occurrence: None)
  Receive Date: 20040322
  Receipt Date: 20040122
  Transmission Date: 20041129
  Serious: No
  Sender: FDA-Public Use
  Company Number: A-US2004-04350

PATIENT
  Age: 72 Year
  Sex: Female

DRUGS (4)
  1. TRACLEER [Suspect]
     Indication: PULMONARY HYPERTENSION
     Dosage: 62.5 MG, BID, UNK
  2. COUMADIN [Concomitant]
  3. ATENOLOL [Concomitant]
  4. DEMADEX [Concomitant]

REACTIONS (1)
  - SWELLING [None]
